FAERS Safety Report 23544906 (Version 2)
Quarter: 2024Q1

REPORT INFORMATION
  Report Type: Spontaneous
  Country: US (occurrence: US)
  Receive Date: 20240220
  Receipt Date: 20240226
  Transmission Date: 20240410
  Serious: Yes (Other)
  Sender: FDA-Public Use
  Company Number: US-SANOFI-01944730

PATIENT
  Age: 47 Year
  Sex: Male

DRUGS (2)
  1. LANTUS SOLOSTAR [Suspect]
     Active Substance: INSULIN GLARGINE
     Indication: Diabetes mellitus
     Dosage: 8 IU, QD
  2. HUMALOG [Concomitant]
     Active Substance: INSULIN LISPRO
     Dosage: UNK

REACTIONS (4)
  - Cataract [Unknown]
  - Dizziness [Unknown]
  - Visual impairment [Unknown]
  - Multiple use of single-use product [Unknown]
